FAERS Safety Report 11629823 (Version 2)
Quarter: 2015Q4

REPORT INFORMATION
  Report Type: Spontaneous
  Country: US (occurrence: US)
  Receive Date: 20151014
  Receipt Date: 20151016
  Transmission Date: 20160304
  Serious: No
  Sender: FDA-Public Use
  Company Number: US-PFIZER INC-2015336752

PATIENT
  Sex: Male

DRUGS (9)
  1. GABAPENTIN. [Suspect]
     Active Substance: GABAPENTIN
     Dosage: 300 MG, 2X/DAY
  2. ZARONTIN [Concomitant]
     Active Substance: ETHOSUXIMIDE
     Indication: EPILEPSY
     Dosage: 250 MG, 2X/DAY
     Dates: start: 201506
  3. GABAPENTIN. [Suspect]
     Active Substance: GABAPENTIN
     Indication: HICCUPS
     Dosage: 200 MG, DAILY AT NIGHT
  4. GABAPENTIN. [Suspect]
     Active Substance: GABAPENTIN
     Dosage: UNK
     Dates: end: 201508
  5. GABAPENTIN. [Suspect]
     Active Substance: GABAPENTIN
     Dosage: 200 MG, 2X/DAY
  6. LAMICTAL [Concomitant]
     Active Substance: LAMOTRIGINE
     Indication: SEIZURE
     Dosage: UNK, 3X/DAY (ON ABOUT 500MG A DAY. DOSES ARE DIVIDED INTO 3 DOSES A DAY)
  7. ZARONTIN [Concomitant]
     Active Substance: ETHOSUXIMIDE
     Dosage: 500 MG, 2X/DAY
  8. GABAPENTIN. [Suspect]
     Active Substance: GABAPENTIN
     Dosage: ^1800 MG A DAY, POSSIBLY LESS^
  9. ACETAZOLAMIDE. [Concomitant]
     Active Substance: ACETAZOLAMIDE
     Indication: SEIZURE
     Dosage: 375 MG (1/2 OF 250 TABLET IN MORNING 125MG; 250MG AT NIGHT), DAILY

REACTIONS (3)
  - Drug ineffective for unapproved indication [Unknown]
  - Condition aggravated [Recovering/Resolving]
  - Somnolence [Unknown]
